FAERS Safety Report 5715646-8 (Version None)
Quarter: 2008Q2

REPORT INFORMATION
  Report Type: 
  Country: None (occurrence: None)
  Receive Date: 20080423
  Receipt Date: 20080423
  Transmission Date: 20081010
  Serious: Yes (Hospitalization)
  Sender: FDA-Public Use
  Company Number: None

PATIENT
  Age: 67 Year
  Sex: Male
  Weight: 101 kg

DRUGS (5)
  1. NEXAVAR [Suspect]
     Indication: PROSTATE CANCER
     Dosage: 400 MG BID PO
     Route: 048
     Dates: start: 20070425, end: 20080124
  2. VALIUM [Concomitant]
  3. LIPITOR [Concomitant]
  4. COREG [Concomitant]
  5. NORVASC [Concomitant]

REACTIONS (2)
  - DISEASE PROGRESSION [None]
  - FAECALOMA [None]
